FAERS Safety Report 20953953 (Version 1)
Quarter: 2022Q2

REPORT INFORMATION
  Report Type: Spontaneous
  Country: US (occurrence: US)
  Receive Date: 20220614
  Receipt Date: 20220614
  Transmission Date: 20220721
  Serious: Yes (Other)
  Sender: FDA-Public Use
  Company Number: US-BRISTOL-MYERS SQUIBB COMPANY-2022-050896

PATIENT
  Age: 75 Year
  Sex: Female

DRUGS (2)
  1. REVLIMID [Suspect]
     Active Substance: LENALIDOMIDE
     Indication: Product used for unknown indication
     Dosage: 14 DAYS ON AND 7 DAYS OFF
     Route: 048
     Dates: start: 202009, end: 202205
  2. REVLIMID [Suspect]
     Active Substance: LENALIDOMIDE
     Dosage: 14 DAYS ON AND 7 DAYS OFF
     Route: 048

REACTIONS (2)
  - Hypokalaemia [Unknown]
  - Hypomagnesaemia [Unknown]

NARRATIVE: CASE EVENT DATE: 20220530
